FAERS Safety Report 10721546 (Version 1)
Quarter: 2015Q1

REPORT INFORMATION
  Report Type: Spontaneous
  Country: US (occurrence: US)
  Receive Date: 20150119
  Receipt Date: 20150119
  Transmission Date: 20150721
  Serious: Yes (Other)
  Sender: FDA-Public Use
  Company Number: US-SA-2015SA005333

PATIENT

DRUGS (1)
  1. RENVELA [Suspect]
     Active Substance: SEVELAMER CARBONATE
     Dosage: NOT WITH EVERY MEAL TO THE DOCTORS SPECIFICATIONS
     Route: 065

REACTIONS (1)
  - Rectal haemorrhage [Recovered/Resolved]
